FAERS Safety Report 7828507-5 (Version None)
Quarter: 2011Q4

REPORT INFORMATION
  Report Type: 
  Country: None (occurrence: None)
  Receive Date: 20111020
  Receipt Date: 20111013
  Transmission Date: 20120403
  Serious: Yes (Hospitalization, Other)
  Sender: FDA-Public Use
  Company Number: JP-ABBOTT-10P-087-0624687-00

PATIENT
  Age: 80 Year
  Sex: Female

DRUGS (13)
  1. ACETAMINOPHEN [Suspect]
     Indication: ERYTHEMA MULTIFORME
  2. DILTIAZEM HCL [Concomitant]
     Route: 048
  3. DILTIAZEM HCL [Suspect]
     Indication: PRODUCT USED FOR UNKNOWN INDICATION
     Route: 048
  4. SUCRALFATE [Suspect]
     Indication: ERYTHEMA MULTIFORME
  5. ACETAMINOPHEN [Suspect]
     Indication: HYPERTHERMIA
  6. SUCRALFATE [Suspect]
     Indication: HYPERTHERMIA
  7. VOLTAREN [Suspect]
     Indication: ERYTHEMA MULTIFORME
  8. VOLTAREN [Suspect]
     Indication: HYPERTHERMIA
     Route: 054
  9. CEFDINIR [Suspect]
     Indication: PRODUCT USED FOR UNKNOWN INDICATION
     Route: 048
  10. MICARDIS [Suspect]
     Indication: PRODUCT USED FOR UNKNOWN INDICATION
     Route: 048
  11. ACETAMINOPHEN [Concomitant]
     Indication: PRODUCT USED FOR UNKNOWN INDICATION
  12. SUCRALFATE [Concomitant]
     Indication: PRODUCT USED FOR UNKNOWN INDICATION
  13. VOLTAREN [Concomitant]
     Indication: PRODUCT USED FOR UNKNOWN INDICATION

REACTIONS (3)
  - ACUTE GENERALISED EXANTHEMATOUS PUSTULOSIS [None]
  - DEHYDRATION [None]
  - LYMPHOCYTE STIMULATION TEST POSITIVE [None]
